FAERS Safety Report 5236741-6 (Version None)
Quarter: 2007Q1

REPORT INFORMATION
  Report Type: 
  Country: None (occurrence: None)
  Receive Date: 20070213
  Receipt Date: 20070130
  Transmission Date: 20070707
  Serious: Yes (Hospitalization)
  Sender: FDA-Public Use
  Company Number: PHHO2007MX02341

PATIENT
  Age: 24 Year
  Sex: Female

DRUGS (1)
  1. TEGRETOL 400 LC [Suspect]
     Indication: EPILEPSY
     Dosage: 1.5 TABLETS (400MG)/DAY
     Route: 048

REACTIONS (1)
  - AGGRESSION [None]
